FAERS Safety Report 7693729 (Version 2)
Quarter: 2013Q4

REPORT INFORMATION
  Report Type: Report from Study
  Country: FR (occurrence: FR)
  Receive Date: 20101206
  Receipt Date: 20131009
  Transmission Date: 20140711
  Serious: Yes (Hospitalization)
  Sender: FDA-Public Use
  Company Number: FR-ROCHE-734168

PATIENT
  Age: 62 Year
  Sex: Male
  Weight: 65 kg

DRUGS (2)
  1. BEVACIZUMAB [Suspect]
     Indication: GLIOBLASTOMA
     Dosage: LAST DOSE BEFORE SAE 3 NOV 2010,CUMULATIVE DOSE : 650 MG,CYCLE 1,THERAPY CYCLE POSTPONED FOR 1 WEEK
     Route: 042
  2. IRINOTECAN [Suspect]
     Indication: GLIOBLASTOMA
     Dosage: LAST DOSE PRIOR TO SAE: 30 SEP 2010, CUMULATIVE DOSE: 220 MG, CYCLE 1
     Route: 042

REACTIONS (2)
  - Mucosal inflammation [Recovered/Resolved with Sequelae]
  - Headache [Recovered/Resolved with Sequelae]
